FAERS Safety Report 9251260 (Version 1)
Quarter: 2013Q2

REPORT INFORMATION
  Report Type: Report from Study
  Country: US (occurrence: US)
  Receive Date: 20130424
  Receipt Date: 20130424
  Transmission Date: 20140414
  Serious: Yes (Hospitalization, Other)
  Sender: FDA-Public Use
  Company Number: US-TEVA-400076USA

PATIENT
  Age: 1 Year
  Sex: Male
  Weight: 9.8 kg

DRUGS (6)
  1. LESTAURTINIB [Suspect]
     Dates: start: 20120426, end: 20130415
  2. CYTARABINE [Suspect]
     Dates: start: 20120426, end: 20130412
  3. DEXAMETHASONE [Suspect]
     Dates: start: 20120426, end: 20130416
  4. HYDROCORTISONE [Suspect]
     Dates: start: 20120426, end: 20130412
  5. METHOTREXATE [Suspect]
     Dates: start: 20120426, end: 20130412
  6. VINCRISTINE [Suspect]
     Dates: start: 20120426, end: 20130412

REACTIONS (3)
  - Aspartate aminotransferase increased [Recovering/Resolving]
  - Alanine aminotransferase increased [Recovering/Resolving]
  - Clostridium difficile infection [Recovering/Resolving]
